FAERS Safety Report 6850601-6 (Version None)
Quarter: 2010Q3

REPORT INFORMATION
  Report Type: 
  Country: None (occurrence: None)
  Receive Date: 20100716
  Receipt Date: 20071017
  Transmission Date: 20110219
  Serious: No
  Sender: FDA-Public Use
  Company Number: US-PFIZER INC-2007088622

PATIENT
  Age: 60 Year
  Sex: Male
  Weight: 108 kg

DRUGS (11)
  1. CHANTIX [Suspect]
     Indication: SMOKING CESSATION THERAPY
     Route: 048
     Dates: start: 20070901
  2. SITAGLIPTIN [Concomitant]
  3. OMACOR [Concomitant]
  4. DUETACT [Concomitant]
  5. LIPITOR [Concomitant]
  6. LISINOPRIL [Concomitant]
  7. HYDROCHLOROTHIAZIDE [Concomitant]
  8. NEXIUM [Concomitant]
  9. METHOTREXATE [Concomitant]
  10. LANTUS [Concomitant]
  11. REMICADE [Concomitant]
     Dosage: 2 EVERY 1 MONTHS
     Route: 042

REACTIONS (4)
  - BACK PAIN [None]
  - CONSTIPATION [None]
  - DIARRHOEA [None]
  - PAIN [None]
